FAERS Safety Report 6286927-7 (Version None)
Quarter: 2009Q3

REPORT INFORMATION
  Report Type: 
  Country: None (occurrence: None)
  Receive Date: 20090728
  Receipt Date: 20090715
  Transmission Date: 20100115
  Serious: Yes (Hospitalization, Other)
  Sender: FDA-Public Use
  Company Number: RU-ROCHE-644178

PATIENT
  Age: 46 Year
  Sex: Female

DRUGS (3)
  1. PEGASYS [Suspect]
     Route: 058
     Dates: start: 20081217
  2. PEGASYS [Suspect]
     Route: 058
     Dates: start: 20090527
  3. RIBAVIRIN [Concomitant]
     Route: 048
     Dates: start: 20081217

REACTIONS (4)
  - HEPATIC ENCEPHALOPATHY [None]
  - HYPERBILIRUBINAEMIA [None]
  - LEUKOPENIA [None]
  - THROMBOCYTOPENIA [None]
